FAERS Safety Report 7647592-7 (Version None)
Quarter: 2011Q3

REPORT INFORMATION
  Report Type: 
  Country: None (occurrence: None)
  Receive Date: 20110801
  Receipt Date: 20090702
  Transmission Date: 20111222
  Serious: Yes (Other)
  Sender: FDA-Public Use
  Company Number: US-BAYER-200920306NA

PATIENT
  Age: 35 Year
  Sex: Female
  Weight: 47.273 kg

DRUGS (26)
  1. PLENDIL [Concomitant]
  2. NEPHROVITE [VIT C,VIT H,B5,B12,B9,B3,B6,B2,B1 HCL] [Concomitant]
  3. DILAUDID [Concomitant]
  4. CLONIDINE [Concomitant]
  5. MONOPRIL [Concomitant]
  6. RENAGEL [Concomitant]
  7. PREVACID [Concomitant]
  8. DILTIAZEM [Concomitant]
  9. MAGNEVIST [Suspect]
     Indication: NUCLEAR MAGNETIC RESONANCE IMAGING BRAIN
     Dosage: UNK UNK, ONCE
     Dates: start: 20030603, end: 20030603
  10. TRIAMCINOLONE [Concomitant]
  11. CLONIDINE [Concomitant]
  12. LOPRESSOR [Concomitant]
  13. EPOGEN [Concomitant]
  14. OXYCONTIN [Concomitant]
  15. EPOGEN [Concomitant]
  16. LOVENOX [Concomitant]
  17. MAGNEVIST [Suspect]
     Indication: NUCLEAR MAGNETIC RESONANCE IMAGING
     Dates: start: 20020522, end: 20020522
  18. MAGNEVIST [Suspect]
     Dates: start: 20050324, end: 20050324
  19. METOPROLOL SUCCINATE [Concomitant]
  20. COUMADIN [Concomitant]
  21. MAGNEVIST [Suspect]
     Indication: NUCLEAR MAGNETIC RESONANCE IMAGING ABDOMINAL
     Dosage: UNK UNK, ONCE
     Dates: start: 20041130, end: 20041130
  22. MAGNEVIST [Suspect]
     Dosage: UNK UNK, ONCE
     Dates: start: 20050209, end: 20050209
  23. OXYCODONE HCL [Concomitant]
  24. CALCIJEX [Concomitant]
  25. ROCALTROL [Concomitant]
  26. COUMADIN [Concomitant]

REACTIONS (27)
  - CALCINOSIS [None]
  - SKIN HYPERPIGMENTATION [None]
  - PAIN [None]
  - FIBROSIS [None]
  - SCLERAL DISORDER [None]
  - GRIP STRENGTH DECREASED [None]
  - NEPHROGENIC SYSTEMIC FIBROSIS [None]
  - SCLERAL HYPERAEMIA [None]
  - EXTREMITY CONTRACTURE [None]
  - PAIN OF SKIN [None]
  - JOINT LOCK [None]
  - OEDEMA [None]
  - PAIN IN EXTREMITY [None]
  - SKIN INDURATION [None]
  - PEAU D'ORANGE [None]
  - TENDON PAIN [None]
  - CONJUNCTIVAL HYPERAEMIA [None]
  - SKIN FIBROSIS [None]
  - MYALGIA [None]
  - CORNEAL DEPOSITS [None]
  - BONE PAIN [None]
  - OEDEMA PERIPHERAL [None]
  - SKIN TIGHTNESS [None]
  - JOINT RANGE OF MOTION DECREASED [None]
  - SKIN DISCOLOURATION [None]
  - ARTHRALGIA [None]
  - ABASIA [None]
